APPROVED DRUG PRODUCT: SODIUM CHLORIDE 0.9%
Active Ingredient: SODIUM CHLORIDE
Strength: 45MG/5ML (9MG/ML)
Dosage Form/Route: INJECTABLE;INJECTION
Application: N202832 | Product #005
Applicant: MEDEFIL INC
Approved: Jan 6, 2012 | RLD: Yes | RS: No | Type: DISCN